FAERS Safety Report 8070988-9 (Version None)
Quarter: 2012Q1

REPORT INFORMATION
  Report Type: 
  Country: None (occurrence: None)
  Receive Date: 20120125
  Receipt Date: 20120123
  Transmission Date: 20120608
  Serious: Yes (Other)
  Sender: FDA-Public Use
  Company Number: CA-PURDUE-CAN-2012-0002536

PATIENT
  Sex: Male

DRUGS (1)
  1. HYDROMORPHONE HCL [Suspect]
     Indication: PAIN
     Dosage: 36 MG, DAILY
     Route: 048

REACTIONS (1)
  - PAIN [None]
